FAERS Safety Report 4814107-8 (Version None)
Quarter: 2005Q4

REPORT INFORMATION
  Report Type: 
  Country: None (occurrence: None)
  Receive Date: 20051028
  Receipt Date: 20050630
  Transmission Date: 20060501
  Serious: Yes (Other)
  Sender: FDA-Public Use
  Company Number: US-GLAXOSMITHKLINE-A0564739A

PATIENT
  Age: 62 Year
  Sex: Female

DRUGS (5)
  1. ADVAIR DISKUS 100/50 [Suspect]
     Indication: ASTHMA
     Route: 055
     Dates: start: 20050620, end: 20050627
  2. PREDNISONE [Concomitant]
  3. ZOCOR [Concomitant]
  4. DURAGESIC-100 [Concomitant]
  5. LORTAB [Concomitant]

REACTIONS (1)
  - ASTHMA [None]
